FAERS Safety Report 8342418-0 (Version None)
Quarter: 2012Q2

REPORT INFORMATION
  Report Type: 
  Country: None (occurrence: None)
  Receive Date: 20120508
  Receipt Date: 20120426
  Transmission Date: 20120825
  Serious: No
  Sender: FDA-Public Use
  Company Number: US-BIOGENIDEC-2012BI013317

PATIENT
  Age: 52 Year
  Sex: Female

DRUGS (2)
  1. AVONEX [Concomitant]
     Route: 030
  2. TYSABRI [Suspect]
     Indication: MULTIPLE SCLEROSIS
     Route: 042
     Dates: start: 20120309

REACTIONS (4)
  - URINARY TRACT INFECTION [None]
  - ABDOMINAL PAIN UPPER [None]
  - APHASIA [None]
  - BALANCE DISORDER [None]
